FAERS Safety Report 8323381-5 (Version None)
Quarter: 2012Q2

REPORT INFORMATION
  Report Type: 
  Country: None (occurrence: None)
  Receive Date: 20120430
  Receipt Date: 20120423
  Transmission Date: 20120825
  Serious: Yes (Hospitalization, Other)
  Sender: FDA-Public Use
  Company Number: US-MERCK-0912USA03686

PATIENT
  Age: 50 Year
  Sex: Female
  Weight: 58 kg

DRUGS (15)
  1. FOSAMAX [Suspect]
     Indication: OSTEOPOROSIS
     Route: 048
     Dates: start: 20051201
  2. FOSAMAX [Suspect]
     Route: 048
     Dates: start: 20020101, end: 20040101
  3. CARTIA XT [Concomitant]
     Route: 065
  4. ASPIRIN [Concomitant]
     Route: 065
  5. EFFEXOR [Concomitant]
     Indication: DEPRESSION
     Route: 048
  6. CARDIZEM SR [Concomitant]
     Route: 065
  7. OGEN [Concomitant]
     Route: 065
  8. LEVSINEX TIMECAPS [Concomitant]
     Route: 065
  9. ALENDRONATE SODIUM [Suspect]
     Route: 048
     Dates: start: 20080401, end: 20090601
  10. TAGAMET [Concomitant]
     Route: 065
  11. FOSAMAX [Suspect]
     Route: 048
     Dates: start: 19950101, end: 20000101
  12. LASIX [Concomitant]
     Route: 065
  13. NITROGLYCERIN [Concomitant]
     Route: 065
     Dates: start: 19970425
  14. FOSAMAX [Suspect]
     Route: 048
     Dates: start: 20000101, end: 20090601
  15. GLYBURIDE [Concomitant]
     Indication: TYPE 2 DIABETES MELLITUS
     Route: 065

REACTIONS (39)
  - FLANK PAIN [None]
  - HAEMORRHOIDS [None]
  - ANAEMIA POSTOPERATIVE [None]
  - FALL [None]
  - DYSPHAGIA [None]
  - WEIGHT DECREASED [None]
  - RHEUMATOID ARTHRITIS [None]
  - MUSCLE STRAIN [None]
  - ATROPHY [None]
  - DEPRESSION [None]
  - GASTRITIS [None]
  - OESOPHAGITIS [None]
  - CONTUSION [None]
  - HEPATITIS B [None]
  - ARTHRALGIA [None]
  - ASTHMA [None]
  - BREAST CYST [None]
  - ABDOMINAL PAIN [None]
  - SUICIDAL IDEATION [None]
  - FRACTURE NONUNION [None]
  - BURSITIS [None]
  - HAEMORRHAGIC DIATHESIS [None]
  - BACK PAIN [None]
  - FRACTURE DELAYED UNION [None]
  - OSTEOARTHRITIS [None]
  - HEPATITIS A [None]
  - GROIN PAIN [None]
  - MUSCLE SPASMS [None]
  - LACERATION [None]
  - FEMUR FRACTURE [None]
  - WEIGHT INCREASED [None]
  - SALIVARY GLAND CALCULUS [None]
  - EXOSTOSIS [None]
  - MYOCARDIAL ISCHAEMIA [None]
  - MONOPLEGIA [None]
  - ANXIETY [None]
  - FOOT FRACTURE [None]
  - OEDEMA PERIPHERAL [None]
  - INTERVERTEBRAL DISC DEGENERATION [None]
